FAERS Safety Report 8452111 (Version 4)
Quarter: 2012Q4

REPORT INFORMATION
  Report Type: 
  Country: DE (occurrence: DE)
  Receive Date: 20120310
  Receipt Date: 20121029
  Transmission Date: 20130627
  Serious: Yes (Other)
  Sender: FDA-Public Use
  Company Number: DE-AMGEN-DEUSP2012013874

PATIENT
  Age: 68 Year
  Sex: Female

DRUGS (1)
  1. ENBREL [Suspect]
     Indication: RHEUMATOID ARTHRITIS
     Dosage: 50 mg, weekly
     Dates: start: 20100301, end: 20120531

REACTIONS (6)
  - Bone loss [Recovering/Resolving]
  - Periodontitis [Recovering/Resolving]
  - Mouth ulceration [Recovering/Resolving]
  - Device connection issue [Recovering/Resolving]
  - Oral bacterial infection [Recovering/Resolving]
  - Device related infection [Recovering/Resolving]
